FAERS Safety Report 23118636 (Version 5)
Quarter: 2024Q1

REPORT INFORMATION
  Report Type: Report from Study
  Country: US (occurrence: US)
  Receive Date: 20231028
  Receipt Date: 20240201
  Transmission Date: 20240409
  Serious: No
  Sender: FDA-Public Use
  Company Number: US-002147023-NVSC2023US230195

PATIENT
  Age: 49 Year
  Sex: Male

DRUGS (3)
  1. KESIMPTA [Suspect]
     Active Substance: OFATUMUMAB
     Indication: Product used for unknown indication
     Dosage: UNK, (FIRST INJECTION)
     Route: 065
     Dates: start: 20231023
  2. KESIMPTA [Suspect]
     Active Substance: OFATUMUMAB
     Dosage: UNK, (SECOND INJECTION)
     Route: 065
  3. KESIMPTA [Suspect]
     Active Substance: OFATUMUMAB
     Dosage: UNK, (THIRD INJECTION)
     Route: 065

REACTIONS (9)
  - Dysgeusia [Unknown]
  - Poor quality sleep [Unknown]
  - Arthralgia [Unknown]
  - Pyrexia [Unknown]
  - Headache [Unknown]
  - Chills [Unknown]
  - Suspected COVID-19 [Unknown]
  - Night sweats [Unknown]
  - Pain [Unknown]

NARRATIVE: CASE EVENT DATE: 20231023
